FAERS Safety Report 7385263-5 (Version None)
Quarter: 2011Q1

REPORT INFORMATION
  Report Type: 
  Country: None (occurrence: None)
  Receive Date: 20110330
  Receipt Date: 20100210
  Transmission Date: 20110831
  Serious: No
  Sender: FDA-Public Use
  Company Number: US-MYLANLABS-2010S1002237

PATIENT
  Age: 46 Year
  Sex: Female

DRUGS (3)
  1. TOPAMAX [Concomitant]
     Indication: MOOD SWINGS
     Route: 048
  2. KLONOPIN [Concomitant]
     Indication: PANIC ATTACK
     Route: 048
  3. EMSAM [Suspect]
     Indication: DEPRESSION
     Dosage: QD
     Route: 062
     Dates: start: 20091230

REACTIONS (6)
  - ABDOMINAL PAIN [None]
  - OEDEMA [None]
  - SEXUAL DYSFUNCTION [None]
  - RASH [None]
  - INSOMNIA [None]
  - DRY MOUTH [None]
